FAERS Safety Report 19154801 (Version 3)
Quarter: 2022Q1

REPORT INFORMATION
  Report Type: Spontaneous
  Country: US (occurrence: None)
  Receive Date: 20210419
  Receipt Date: 20220112
  Transmission Date: 20220423
  Serious: Yes (Death, Other)
  Sender: FDA-Public Use
  Company Number: 2021A329770

PATIENT

DRUGS (6)
  1. NEXIUM [Suspect]
     Active Substance: ESOMEPRAZOLE MAGNESIUM
     Indication: Product used for unknown indication
     Route: 048
  2. NEXIUM 24HR [Suspect]
     Active Substance: ESOMEPRAZOLE MAGNESIUM
     Indication: Product used for unknown indication
     Route: 048
  3. NEXIUM 24HR [Suspect]
     Active Substance: ESOMEPRAZOLE MAGNESIUM
     Indication: Product used for unknown indication
     Route: 048
  4. PRILOSEC [Suspect]
     Active Substance: OMEPRAZOLE MAGNESIUM
     Indication: Product used for unknown indication
     Dosage: GENERIC20.0MG UNKNOWN
     Route: 065
  5. PRILOSEC [Suspect]
     Active Substance: OMEPRAZOLE MAGNESIUM
     Indication: Product used for unknown indication
     Dosage: GENERIC20.0MG UNKNOWN
     Route: 065
  6. PRILOSEC [Suspect]
     Active Substance: OMEPRAZOLE MAGNESIUM
     Indication: Product used for unknown indication
     Dosage: 20.0MG UNKNOWN
     Route: 048

REACTIONS (16)
  - Cerebrovascular accident [Fatal]
  - Anaemia [Unknown]
  - Angina pectoris [Unknown]
  - Arteriosclerosis coronary artery [Unknown]
  - Benign prostatic hyperplasia [Unknown]
  - Chronic kidney disease [Unknown]
  - Chronic kidney disease-mineral and bone disorder [Unknown]
  - Diabetic nephropathy [Unknown]
  - Dysuria [Unknown]
  - Essential hypertension [Unknown]
  - Hypertensive nephropathy [Unknown]
  - Proteinuria [Unknown]
  - Renal cyst [Unknown]
  - Renal disorder [Unknown]
  - Renal failure [Unknown]
  - Urinary tract infection [Unknown]

NARRATIVE: CASE EVENT DATE: 20150721
